FAERS Safety Report 8466045 (Version 2)
Quarter: 2013Q1

REPORT INFORMATION
  Report Type: Spontaneous
  Country: IT (occurrence: IT)
  Receive Date: 20120319
  Receipt Date: 20130311
  Transmission Date: 20140127
  Serious: Yes (Life-Threatening)
  Sender: FDA-Public Use
  Company Number: IT-BRISTOL-MYERS SQUIBB COMPANY-16453839

PATIENT
  Age: 53 Year
  Sex: Male

DRUGS (3)
  1. ERBITUX SOLN FOR INF 5MG/ML [Suspect]
     Indication: RECTAL CANCER
     Route: 042
     Dates: start: 20120114
  2. FLUOROURACIL [Suspect]
     Indication: RECTAL CANCER
     Dosage: STRENGTH:500MG/10ML?FLUOROURACIL TEVA
     Route: 042
     Dates: start: 20120114
  3. CAMPTO [Suspect]
     Indication: RECTAL CANCER
     Dosage: STRENGTH:20MG/ML
     Route: 042
     Dates: start: 20120114

REACTIONS (1)
  - Apnoea [Recovered/Resolved]
